FAERS Safety Report 7835584-4 (Version None)
Quarter: 2011Q4

REPORT INFORMATION
  Report Type: 
  Country: None (occurrence: None)
  Receive Date: 20111024
  Receipt Date: 20111020
  Transmission Date: 20120403
  Serious: Yes (Other)
  Sender: FDA-Public Use
  Company Number: PHHY2011BE92953

PATIENT
  Sex: Male

DRUGS (1)
  1. ZOLEDRONOC ACID [Suspect]
     Indication: OSTEOPOROSIS
     Dosage: 5 MG
     Route: 042
     Dates: start: 20111013

REACTIONS (4)
  - BACK PAIN [None]
  - MUSCULOSKELETAL CHEST PAIN [None]
  - SPINAL COMPRESSION FRACTURE [None]
  - MALAISE [None]
